FAERS Safety Report 4930144-7 (Version None)
Quarter: 2006Q1

REPORT INFORMATION
  Report Type: 
  Country: None (occurrence: None)
  Receive Date: 20060228
  Receipt Date: 20060228
  Transmission Date: 20060701
  Serious: Yes (Hospitalization, Other)
  Sender: FDA-Public Use
  Company Number: None

PATIENT
  Sex: Female
  Weight: 106.5 kg

DRUGS (3)
  1. DOXORUBICIN HCL [Suspect]
     Indication: HODGKIN'S DISEASE
     Dosage: 54 MG
     Dates: start: 20060221, end: 20060221
  2. GEMCITABINE HYDROCHLORIDE [Suspect]
     Dosage: 1736 MG
     Dates: start: 20060221, end: 20060221
  3. VINBLASTINE SULFATE [Suspect]
     Dosage: 13 MG
     Dates: start: 20060221, end: 20060221

REACTIONS (2)
  - INFUSION RELATED REACTION [None]
  - PYREXIA [None]
